FAERS Safety Report 15358811 (Version 1)
Quarter: 2018Q3

REPORT INFORMATION
  Report Type: Report from Study
  Country: US (occurrence: US)
  Receive Date: 20180906
  Receipt Date: 20180906
  Transmission Date: 20181010
  Serious: Yes (Hospitalization)
  Sender: FDA-Public Use
  Company Number: US-ACTELION-A-US2016-142710

PATIENT
  Age: 60 Year
  Sex: Female
  Weight: 66.67 kg

DRUGS (2)
  1. ADCIRCA [Concomitant]
     Active Substance: TADALAFIL
  2. OPSUMIT [Suspect]
     Active Substance: MACITENTAN
     Indication: PULMONARY ARTERIAL HYPERTENSION
     Dosage: 10 MG, QD
     Route: 048
     Dates: start: 20160815

REACTIONS (5)
  - Musculoskeletal stiffness [Unknown]
  - Surgery [Unknown]
  - Hospitalisation [Unknown]
  - Peripheral swelling [Unknown]
  - Neck pain [Unknown]

NARRATIVE: CASE EVENT DATE: 20180810
